FAERS Safety Report 23433055 (Version 1)
Quarter: 2024Q1

REPORT INFORMATION
  Report Type: Spontaneous
  Country: KR (occurrence: None)
  Receive Date: 20240123
  Receipt Date: 20240123
  Transmission Date: 20240410
  Serious: Yes (Other)
  Sender: FDA-Public Use
  Company Number: 2024A014415

PATIENT
  Age: 65 Year
  Sex: Female

DRUGS (1)
  1. NEXIUM [Suspect]
     Active Substance: ESOMEPRAZOLE MAGNESIUM
     Indication: Hepatobiliary cancer
     Route: 048
     Dates: start: 20210209

REACTIONS (4)
  - Epidermolysis bullosa [Recovered/Resolved]
  - Dermatitis bullous [Recovered/Resolved]
  - Rash pruritic [Recovered/Resolved]
  - Urticaria [Recovered/Resolved]

NARRATIVE: CASE EVENT DATE: 20210209
